FAERS Safety Report 6920049-4 (Version None)
Quarter: 2010Q3

REPORT INFORMATION
  Report Type: 
  Country: None (occurrence: None)
  Receive Date: 20100811
  Receipt Date: 20100730
  Transmission Date: 20110219
  Serious: Yes (Other)
  Sender: FDA-Public Use
  Company Number: US-PFIZER INC-2010096987

PATIENT
  Sex: Female
  Weight: 70.295 kg

DRUGS (7)
  1. RELPAX [Suspect]
     Indication: MIGRAINE
     Dosage: 40 MG, AS NEEDED
     Route: 048
     Dates: start: 20070101
  2. MONTELUKAST SODIUM [Concomitant]
     Indication: ASTHMA
     Dosage: UNK
  3. ALLEGRA D 24 HOUR [Concomitant]
     Indication: HYPERSENSITIVITY
     Dosage: UNK
  4. ADDERALL 10 [Concomitant]
     Indication: MULTIPLE SCLEROSIS
     Dosage: UNK
  5. XANAX [Concomitant]
     Indication: VERTIGO
     Dosage: UNK
  6. VALIUM [Concomitant]
     Indication: VERTIGO
     Dosage: UNK
  7. RESTORIL [Concomitant]
     Indication: VERTIGO
     Dosage: UNK

REACTIONS (3)
  - FIBROMYALGIA [None]
  - MIGRAINE [None]
  - PAIN [None]
